FAERS Safety Report 5849075-3 (Version None)
Quarter: 2008Q3

REPORT INFORMATION
  Report Type: 
  Country: None (occurrence: None)
  Receive Date: 20080819
  Receipt Date: 20080812
  Transmission Date: 20090109
  Serious: Yes (Other)
  Sender: FDA-Public Use
  Company Number: PHHY2008CA17898

PATIENT
  Sex: Female

DRUGS (6)
  1. ACLASTA [Suspect]
     Indication: OSTEOPOROSIS
     Dosage: UNK
     Dates: start: 20080730
  2. POTASSIUM SUPPLEMENTS [Concomitant]
     Dosage: UNK
  3. VERAPAMIL [Concomitant]
  4. CALCIUM [Concomitant]
     Dosage: 500
  5. CITRACAL [Concomitant]
  6. LIPIDIL [Concomitant]
     Dosage: 160 MG

REACTIONS (5)
  - BLOOD POTASSIUM DECREASED [None]
  - DIZZINESS [None]
  - FALL [None]
  - INFLUENZA LIKE ILLNESS [None]
  - PYREXIA [None]
